FAERS Safety Report 10239652 (Version 2)
Quarter: 2014Q4

REPORT INFORMATION
  Report Type: Spontaneous
  Country: IT (occurrence: IT)
  Receive Date: 20140616
  Receipt Date: 20141106
  Transmission Date: 20150528
  Serious: Yes (Hospitalization)
  Sender: FDA-Public Use
  Company Number: IT-TEVA-488368ISR

PATIENT
  Age: 72 Year
  Sex: Female

DRUGS (3)
  1. MODURETIC 5-50 [Interacting]
     Active Substance: AMILORIDE HYDROCHLORIDE\HYDROCHLOROTHIAZIDE
     Indication: HYPERTENSION
     Dosage: 1 DF DAILY
     Route: 048
     Dates: start: 20140101, end: 20140529
  2. XANAX - 0,75 MG/ML GOCCE ORALI, SOLUZIONE [Concomitant]
     Indication: ANXIETY
     Dosage: 10 GTT
     Route: 048
     Dates: start: 20140101, end: 20140529
  3. CITALOPRAM [Suspect]
     Active Substance: CITALOPRAM HYDROBROMIDE
     Indication: DEPRESSION
     Dosage: 5 GTT DAILY
     Route: 048
     Dates: start: 20140509, end: 20140529

REACTIONS (2)
  - Drug interaction [Recovering/Resolving]
  - Hyponatraemia [Recovering/Resolving]

NARRATIVE: CASE EVENT DATE: 20140529
